FAERS Safety Report 5903148-5 (Version None)
Quarter: 2008Q3

REPORT INFORMATION
  Report Type: 
  Country: None (occurrence: None)
  Receive Date: 20080926
  Receipt Date: 20080918
  Transmission Date: 20090109
  Serious: Yes (Death)
  Sender: FDA-Public Use
  Company Number: 2008-02928

PATIENT
  Age: 59 Year
  Sex: Female

DRUGS (7)
  1. VELCADE [Suspect]
     Indication: MULTIPLE MYELOMA
     Dosage: 2..4 MG, INTRAVENOUS
     Route: 042
     Dates: start: 20080424, end: 20080606
  2. METOCLOPRAMIDE [Concomitant]
  3. FLUCONAZOLE [Concomitant]
  4. LANSOPRAZOLE [Concomitant]
  5. ZOPLICONE (ZOPICLONE) [Concomitant]
  6. DEXAMETHASONE [Concomitant]
  7. CO-DANTHRAMER (DANTRON, POLOXAMER) [Concomitant]

REACTIONS (7)
  - ABDOMINAL DISTENSION [None]
  - ANOREXIA [None]
  - CONFUSIONAL STATE [None]
  - DISEASE PROGRESSION [None]
  - DRUG INEFFECTIVE [None]
  - MONOCLONAL IMMUNOGLOBULIN PRESENT [None]
  - MULTIPLE MYELOMA [None]
